FAERS Safety Report 8257284-1 (Version None)
Quarter: 2012Q2

REPORT INFORMATION
  Report Type: 
  Country: None (occurrence: None)
  Receive Date: 20120403
  Receipt Date: 20120323
  Transmission Date: 20120825
  Serious: Yes (Hospitalization, Other)
  Sender: FDA-Public Use
  Company Number: CO-JNJFOC-20120313019

PATIENT
  Age: 25 Year
  Sex: Female

DRUGS (2)
  1. INFLIXIMAB, RECOMBINANT [Suspect]
     Indication: SACROILIITIS
     Dosage: DOSAGE INTERVAL WAS ALSO REPORTED AS ONCE EVERY 45 DAYS
     Route: 042
     Dates: start: 20090813
  2. INFLIXIMAB, RECOMBINANT [Suspect]
     Route: 042
     Dates: start: 20120125, end: 20120301

REACTIONS (6)
  - HEADACHE [None]
  - DEHYDRATION [None]
  - MATERNAL EXPOSURE DURING PREGNANCY [None]
  - TACHYCARDIA [None]
  - ABDOMINAL PAIN [None]
  - VOMITING [None]
